FAERS Safety Report 12072165 (Version 1)
Quarter: 2016Q1

REPORT INFORMATION
  Report Type: Spontaneous
  Country: US (occurrence: None)
  Receive Date: 20160211
  Receipt Date: 20160211
  Transmission Date: 20160526
  Serious: No
  Sender: FDA-Public Use
  Company Number: None

PATIENT
  Age: 58 Year
  Sex: Male

DRUGS (9)
  1. ROBXIN [Concomitant]
  2. AMPYRA [Concomitant]
     Active Substance: DALFAMPRIDINE
  3. BACLOFEN. [Concomitant]
     Active Substance: BACLOFEN
  4. EXTAVIA [Concomitant]
     Active Substance: INTERFERON BETA-1B
  5. AMPYRA [Suspect]
     Active Substance: DALFAMPRIDINE
     Indication: MULTIPLE SCLEROSIS
     Route: 048
     Dates: start: 201412
  6. COZAAR [Concomitant]
     Active Substance: LOSARTAN POTASSIUM
  7. HCTZ [Concomitant]
     Active Substance: HYDROCHLOROTHIAZIDE
  8. FLEXERIL [Concomitant]
     Active Substance: CYCLOBENZAPRINE HYDROCHLORIDE
  9. NEURONTIN [Concomitant]
     Active Substance: GABAPENTIN

REACTIONS (1)
  - Occult blood positive [None]

NARRATIVE: CASE EVENT DATE: 20160202
